FAERS Safety Report 14497190 (Version 1)
Quarter: 2018Q1

REPORT INFORMATION
  Report Type: Spontaneous
  Country: US (occurrence: US)
  Receive Date: 20180206
  Receipt Date: 20180206
  Transmission Date: 20180509
  Serious: Yes (Death, Hospitalization)
  Sender: FDA-Public Use
  Company Number: None

PATIENT
  Age: 18 Year
  Sex: Female
  Weight: 77 kg

DRUGS (12)
  1. CYTARABINE. [Suspect]
     Active Substance: CYTARABINE
     Dates: end: 20180107
  2. LINEZOLID. [Concomitant]
     Active Substance: LINEZOLID
  3. ONCASPAR [Suspect]
     Active Substance: PEGASPARGASE
     Dates: end: 20180110
  4. PREDNISONE. [Suspect]
     Active Substance: PREDNISONE
     Dates: end: 20180118
  5. POSACONAZOLE [Concomitant]
     Active Substance: POSACONAZOLE
  6. METHOTREXATE. [Suspect]
     Active Substance: METHOTREXATE
     Dates: end: 20180114
  7. VINCRISTINE SULFATE. [Suspect]
     Active Substance: VINCRISTINE SULFATE
     Dates: end: 20180114
  8. MICAFUNGIN [Concomitant]
     Active Substance: MICAFUNGIN
  9. TOTAL PARENTERAL NUTRITION (TPN) [Concomitant]
  10. VANCOMYCIN [Concomitant]
     Active Substance: VANCOMYCIN
  11. MEROPENUM [Concomitant]
     Active Substance: MEROPENEM
  12. DAUNORUBICIN [Suspect]
     Active Substance: DAUNORUBICIN
     Dates: end: 20180114

REACTIONS (13)
  - Respiratory distress [None]
  - Cerebral haemorrhage [None]
  - Blood bilirubin increased [None]
  - Blood creatinine increased [None]
  - Renal failure [None]
  - Thrombocytopenia [None]
  - Hypotension [None]
  - Hepatic failure [None]
  - Respiratory failure [None]
  - Brain herniation [None]
  - Anaemia [None]
  - Brain oedema [None]
  - Brain midline shift [None]

NARRATIVE: CASE EVENT DATE: 20180117
